FAERS Safety Report 8356197-4 (Version None)
Quarter: 2012Q2

REPORT INFORMATION
  Report Type: 
  Country: None (occurrence: None)
  Receive Date: 20120510
  Receipt Date: 20120508
  Transmission Date: 20120825
  Serious: Yes (Hospitalization, Other)
  Sender: FDA-Public Use
  Company Number: ADR-2010-8377

PATIENT
  Age: 59 Year
  Sex: Male

DRUGS (1)
  1. BACLOFEN [Suspect]
     Indication: MUSCLE SPASTICITY
     Dosage: 35 - 40 MCG, DAILY, INT
     Route: 037

REACTIONS (5)
  - DYSARTHRIA [None]
  - MUSCLE ATROPHY [None]
  - INTRACRANIAL HYPOTENSION [None]
  - DYSPHAGIA [None]
  - IMPLANT SITE EFFUSION [None]
